FAERS Safety Report 6291486-9 (Version None)
Quarter: 2009Q3

REPORT INFORMATION
  Report Type: 
  Country: None (occurrence: None)
  Receive Date: 20090730
  Receipt Date: 20090720
  Transmission Date: 20100115
  Serious: Yes (Hospitalization, Other)
  Sender: FDA-Public Use
  Company Number: BR-PFIZER INC-2007080654

PATIENT
  Age: 59 Year

DRUGS (6)
  1. CHAMPIX [Interacting]
     Indication: SMOKING CESSATION THERAPY
     Route: 048
     Dates: start: 20070816, end: 20070922
  2. CHAMPIX [Interacting]
     Indication: TOBACCO ABUSE
  3. CITALOR [Suspect]
     Dosage: UNK
     Route: 048
     Dates: start: 20040101, end: 20070901
  4. EFFEXOR [Interacting]
     Indication: ANXIETY
     Route: 048
     Dates: start: 20070301, end: 20070901
  5. NOVALGINA [Concomitant]
     Dates: end: 20070901
  6. OMEPRAZOLE [Concomitant]
     Dates: end: 20070901

REACTIONS (15)
  - AUTOIMMUNE DISORDER [None]
  - DRUG ERUPTION [None]
  - DRUG INTERACTION [None]
  - HAEMATURIA [None]
  - ILL-DEFINED DISORDER [None]
  - LIVER DISORDER [None]
  - LOW DENSITY LIPOPROTEIN DECREASED [None]
  - MALAISE [None]
  - MYALGIA [None]
  - OSTEOPOROSIS [None]
  - PYREXIA [None]
  - RENAL IMPAIRMENT [None]
  - SKIN LESION [None]
  - TRANSAMINASES ABNORMAL [None]
  - VASCULITIS [None]
